FAERS Safety Report 24722332 (Version 3)
Quarter: 2025Q4

REPORT INFORMATION
  Report Type: Report from Study
  Country: US (occurrence: US)
  Receive Date: 20241211
  Receipt Date: 20251003
  Transmission Date: 20260117
  Serious: No
  Sender: SANDOZ
  Company Number: US-SANDOZ-SDZ2024US100431

PATIENT
  Age: 9 Year
  Sex: Male

DRUGS (4)
  1. OMNITROPE [Suspect]
     Active Substance: SOMATROPIN
     Indication: Hypopituitarism
     Dosage: 0.7 MG, QD (0.7 MG 2 DOSE EVERY N/A N/A)10 MG / 1.5 ML SOLUTION FOR INJECTION
     Route: 058
     Dates: start: 20241129
  2. OMNITROPE [Suspect]
     Active Substance: SOMATROPIN
     Indication: Hypopituitarism
     Dosage: 0.7 MG, QD (0.7 MG 2 DOSE EVERY N/A N/A)10 MG / 1.5 ML SOLUTION FOR INJECTION
     Route: 058
     Dates: start: 20241129
  3. OMNITROPE [Suspect]
     Active Substance: SOMATROPIN
     Dosage: 0.7 MG, QD
     Route: 058
     Dates: start: 20250920
  4. OMNITROPE [Suspect]
     Active Substance: SOMATROPIN
     Dosage: 0.7 MG, QD
     Route: 058
     Dates: start: 20250920

REACTIONS (4)
  - Incorrect dose administered by device [Unknown]
  - Wrong technique in device usage process [Unknown]
  - Drug administered in wrong device [Unknown]
  - Needle issue [Unknown]

NARRATIVE: CASE EVENT DATE: 20241129
